FAERS Safety Report 25675005 (Version 1)
Quarter: 2025Q3

REPORT INFORMATION
  Report Type: Spontaneous
  Country: US (occurrence: US)
  Receive Date: 20250813
  Receipt Date: 20250813
  Transmission Date: 20251020
  Serious: Yes (Other)
  Sender: AMERICAN REGENT
  Company Number: US-AMERICAN REGENT INC-2024002987

PATIENT
  Age: 73 Year
  Sex: Male

DRUGS (1)
  1. FERRIC CARBOXYMALTOSE [Suspect]
     Active Substance: FERRIC CARBOXYMALTOSE
     Indication: Blood iron decreased
     Route: 042
     Dates: start: 20240718, end: 20240718

REACTIONS (2)
  - Blood phosphorus decreased [Unknown]
  - Constipation [Unknown]

NARRATIVE: CASE EVENT DATE: 20240701
